FAERS Safety Report 5270262-X (Version None)
Quarter: 2007Q1

REPORT INFORMATION
  Report Type: 
  Country: None (occurrence: None)
  Receive Date: 20070320
  Receipt Date: 20070312
  Transmission Date: 20070707
  Serious: Yes (Other)
  Sender: FDA-Public Use
  Company Number: JP-ELI_LILLY_AND_COMPANY-JP200703002758

PATIENT
  Age: 71 Year
  Sex: Male

DRUGS (2)
  1. GEMZAR [Suspect]
     Indication: MALIGNANT NEOPLASM OF RENAL PELVIS
     Dosage: 1200 MG, OTHER
     Route: 042
     Dates: start: 20070201
  2. RANDA [Concomitant]
     Indication: MALIGNANT NEOPLASM OF RENAL PELVIS
     Dosage: UNK, UNK
     Route: 042
     Dates: start: 20070201

REACTIONS (1)
  - PLATELET COUNT INCREASED [None]
